FAERS Safety Report 5668822-7 (Version None)
Quarter: 2008Q1

REPORT INFORMATION
  Report Type: 
  Country: None (occurrence: None)
  Receive Date: 20080317
  Receipt Date: 20080214
  Transmission Date: 20080703
  Serious: No
  Sender: FDA-Public Use
  Company Number: US-BAYER-200814466NA

PATIENT
  Age: 34 Year
  Sex: Female
  Weight: 74 kg

DRUGS (1)
  1. YAZ [Suspect]
     Route: 048

REACTIONS (2)
  - ABDOMINAL PAIN [None]
  - METRORRHAGIA [None]
